FAERS Safety Report 21593073 (Version 1)
Quarter: 2022Q4

REPORT INFORMATION
  Report Type: Spontaneous
  Country: CN (occurrence: CN)
  Receive Date: 20221114
  Receipt Date: 20221114
  Transmission Date: 20230113
  Serious: Yes (Death, Other)
  Sender: FDA-Public Use
  Company Number: CN-AMGEN-CHNSP2022193466

PATIENT
  Age: 73 Year
  Sex: Male

DRUGS (7)
  1. FILGRASTIM [Suspect]
     Active Substance: FILGRASTIM
     Indication: Leukopenia
     Dosage: UNK
     Route: 065
  2. FILGRASTIM [Suspect]
     Active Substance: FILGRASTIM
     Indication: Off label use
  3. DEXAMETHASONE [Concomitant]
     Active Substance: DEXAMETHASONE
     Indication: Rash
  4. CIMETIDINE [Concomitant]
     Active Substance: CIMETIDINE
     Indication: Rash
  5. DESLORATADINE [Concomitant]
     Active Substance: DESLORATADINE
     Indication: Rash
  6. PROMETHAZINE [Concomitant]
     Active Substance: PROMETHAZINE HYDROCHLORIDE
     Indication: Rash
  7. ITRACONAZOLE [Concomitant]
     Active Substance: ITRACONAZOLE
     Indication: Fungal infection

REACTIONS (3)
  - Haemophagocytic lymphohistiocytosis [Fatal]
  - Pneumonia [Fatal]
  - Off label use [Unknown]
